FAERS Safety Report 5310122-9 (Version None)
Quarter: 2007Q2

REPORT INFORMATION
  Report Type: 
  Country: None (occurrence: None)
  Receive Date: 20070427
  Receipt Date: 20070419
  Transmission Date: 20071010
  Serious: Yes (Hospitalization)
  Sender: FDA-Public Use
  Company Number: FR-MERCK-0704FRA00052

PATIENT
  Age: 69 Year
  Sex: Male

DRUGS (8)
  1. INVANZ [Suspect]
     Indication: OSTEITIS
     Route: 042
     Dates: start: 20070201, end: 20070207
  2. INVANZ [Suspect]
     Indication: SKIN ULCER
     Route: 042
     Dates: start: 20070201, end: 20070207
  3. CETIRIZINE HYDROCHLORIDE [Concomitant]
     Route: 048
     Dates: end: 20070213
  4. IRBESARTAN [Concomitant]
     Route: 048
     Dates: end: 20070213
  5. ACETAZOLAMIDE [Concomitant]
     Route: 048
     Dates: end: 20070213
  6. CLOPIDOGREL BISULFATE [Concomitant]
     Route: 048
     Dates: end: 20070213
  7. VANCOMYCIN [Concomitant]
     Indication: OSTEITIS
     Route: 065
     Dates: start: 20070201, end: 20070213
  8. VANCOMYCIN [Concomitant]
     Indication: SKIN ULCER
     Route: 065
     Dates: start: 20070201, end: 20070213

REACTIONS (3)
  - AGITATION [None]
  - FALL [None]
  - WERNICKE'S ENCEPHALOPATHY [None]
